FAERS Safety Report 22625154 (Version 2)
Quarter: 2024Q2

REPORT INFORMATION
  Report Type: Spontaneous
  Country: US (occurrence: US)
  Receive Date: 20230621
  Receipt Date: 20240528
  Transmission Date: 20240716
  Serious: No
  Sender: FDA-Public Use
  Company Number: US-THERATECHNOLOGIES INC.-2022-THE-TES-000313

PATIENT

DRUGS (3)
  1. EGRIFTA SV [Suspect]
     Active Substance: TESAMORELIN ACETATE
     Indication: Lipodystrophy acquired
     Dosage: 0.35 ML, QD
     Route: 058
     Dates: start: 202111
  2. EGRIFTA SV [Suspect]
     Active Substance: TESAMORELIN ACETATE
     Indication: HIV infection
     Dosage: 0.35 ML, QD
     Route: 058
  3. EGRIFTA SV [Suspect]
     Active Substance: TESAMORELIN ACETATE
     Dosage: 0.35 ML, QD
     Route: 058

REACTIONS (3)
  - Hypoacusis [Not Recovered/Not Resolved]
  - Product complaint [Unknown]
  - Product storage error [Unknown]

NARRATIVE: CASE EVENT DATE: 20221006
